FAERS Safety Report 19168666 (Version 1)
Quarter: 2021Q2

REPORT INFORMATION
  Report Type: Spontaneous
  Country: US (occurrence: US)
  Receive Date: 20210421
  Receipt Date: 20210421
  Transmission Date: 20210717
  Serious: Yes (Hospitalization)
  Sender: FDA-Public Use
  Company Number: None

PATIENT
  Age: 80 Year
  Sex: Male

DRUGS (33)
  1. AMOX/K CLAV [Concomitant]
     Active Substance: AMOXICILLIN\CLAVULANATE POTASSIUM
  2. CLOPIDOGREL [Concomitant]
     Active Substance: CLOPIDOGREL BISULFATE
  3. TAMSULOSIN [Concomitant]
     Active Substance: TAMSULOSIN
  4. VICTOZA [Concomitant]
     Active Substance: LIRAGLUTIDE
  5. VITAMIN D [Concomitant]
     Active Substance: VITAMIN D NOS
  6. WARFARIN [Concomitant]
     Active Substance: WARFARIN
  7. ATORVASTATIN [Concomitant]
     Active Substance: ATORVASTATIN
  8. BEVESPI AER [Concomitant]
  9. FENOFIBRATE. [Concomitant]
     Active Substance: FENOFIBRATE
  10. FINASTERIDE. [Concomitant]
     Active Substance: FINASTERIDE
  11. GABAPENTIN. [Concomitant]
     Active Substance: GABAPENTIN
  12. SODIUM CHLORIDE NEB 3% [Concomitant]
  13. TIMOLOL MAL [Concomitant]
  14. AZITHROMYCIN ANHYDROUS. [Concomitant]
     Active Substance: AZITHROMYCIN ANHYDROUS
  15. CEPHALEXIN. [Concomitant]
     Active Substance: CEPHALEXIN
  16. FURODEMIDE [Concomitant]
  17. ISOSORB MONO [Concomitant]
     Active Substance: ISOSORBIDE MONONITRATE
  18. NITROGLYCERN SUB [Concomitant]
  19. TRIAMCINOLON CRE [Concomitant]
  20. BENZONATATE. [Concomitant]
     Active Substance: BENZONATATE
  21. CETIRIZINE [Concomitant]
     Active Substance: CETIRIZINE HYDROCHLORIDE
  22. LANTUS SOLOS [Concomitant]
  23. NOVOLOG [Concomitant]
     Active Substance: INSULIN ASPART
  24. PANTOPRAZOLE [Concomitant]
     Active Substance: PANTOPRAZOLE
  25. PREDNISONE. [Concomitant]
     Active Substance: PREDNISONE
  26. ESBRIET [Suspect]
     Active Substance: PIRFENIDONE
     Indication: IDIOPATHIC PULMONARY FIBROSIS
     Route: 048
     Dates: start: 20200317
  27. BUMETANIDE. [Concomitant]
     Active Substance: BUMETANIDE
  28. METOPROL TAR [Concomitant]
  29. AMLODIPINE [Concomitant]
     Active Substance: AMLODIPINE BESYLATE
  30. VITAMIN D3 [Concomitant]
     Active Substance: CHOLECALCIFEROL
  31. SOD CHLORIDE NEB 0.9% [Concomitant]
  32. CARVEDILOL. [Concomitant]
     Active Substance: CARVEDILOL
  33. METOLAZONE. [Concomitant]
     Active Substance: METOLAZONE

REACTIONS (1)
  - Lung disorder [None]

NARRATIVE: CASE EVENT DATE: 20210414
